FAERS Safety Report 17353506 (Version 2)
Quarter: 2020Q1

REPORT INFORMATION
  Report Type: Report from Study
  Country: None (occurrence: BR)
  Receive Date: 20200131
  Receipt Date: 20200221
  Transmission Date: 20200409
  Serious: Yes (Other)
  Sender: FDA-Public Use
  Company Number: BR-ABBVIE-19K-020-3211602-00

PATIENT
  Sex: Male
  Weight: 68 kg

DRUGS (6)
  1. PREDNISOLONE. [Concomitant]
     Active Substance: PREDNISOLONE
     Indication: CROHN^S DISEASE
  2. PREDNISOLONE. [Concomitant]
     Active Substance: PREDNISOLONE
     Dates: start: 20200212
  3. HUMIRA [Suspect]
     Active Substance: ADALIMUMAB
     Indication: INTESTINAL STENOSIS
     Dosage: LOADING DOSE WEEK 00
     Route: 058
     Dates: start: 20191114, end: 20191114
  4. HUMIRA [Suspect]
     Active Substance: ADALIMUMAB
     Indication: CROHN^S DISEASE
     Dosage: LOADING DOSE WEEK 02
     Route: 058
     Dates: start: 201911, end: 201911
  5. HUMIRA [Suspect]
     Active Substance: ADALIMUMAB
     Dosage: UNSPECIFIED DOSE
     Route: 058
     Dates: start: 201911
  6. AZATHIOPRINE. [Concomitant]
     Active Substance: AZATHIOPRINE
     Indication: CROHN^S DISEASE

REACTIONS (12)
  - Abdominal pain [Not Recovered/Not Resolved]
  - Therapeutic product effect decreased [Recovering/Resolving]
  - Hypophagia [Unknown]
  - Inflammation [Unknown]
  - Therapeutic response shortened [Unknown]
  - Pain [Unknown]
  - Intestinal obstruction [Unknown]
  - Nausea [Not Recovered/Not Resolved]
  - Condition aggravated [Unknown]
  - Vomiting [Not Recovered/Not Resolved]
  - Pain [Recovering/Resolving]
  - Diarrhoea [Unknown]
